FAERS Safety Report 5072592-3 (Version None)
Quarter: 2006Q3

REPORT INFORMATION
  Report Type: 
  Country: None (occurrence: None)
  Receive Date: 20060807
  Receipt Date: 20060727
  Transmission Date: 20061208
  Serious: Yes (Other)
  Sender: FDA-Public Use
  Company Number: US-JNJFOC-20060800213

PATIENT
  Sex: Female

DRUGS (2)
  1. RISPERDAL [Suspect]
     Indication: SCHIZOPHRENIA
     Dosage: 3-4 MG TWICE DAILY
     Route: 048
  2. DEPAKOTE [Concomitant]

REACTIONS (4)
  - AMENORRHOEA [None]
  - BLOOD PROLACTIN ABNORMAL [None]
  - INFERTILITY [None]
  - PITUITARY TUMOUR [None]
